FAERS Safety Report 7909938-1 (Version None)
Quarter: 2011Q4

REPORT INFORMATION
  Report Type: 
  Country: None (occurrence: None)
  Receive Date: 20111111
  Receipt Date: 20111102
  Transmission Date: 20120403
  Serious: Yes (Life-Threatening)
  Sender: FDA-Public Use
  Company Number: NL-ROCHE-1009109

PATIENT
  Sex: Female

DRUGS (5)
  1. METOPROLOL [Concomitant]
     Dates: start: 20111005
  2. ENALAPRIL MALEATE [Concomitant]
     Dates: start: 20110304
  3. HERCEPTIN [Suspect]
     Indication: BREAST CANCER METASTATIC
     Route: 042
     Dates: start: 20101111, end: 20110929
  4. PACLITAXEL [Suspect]
     Indication: BREAST CANCER METASTATIC
     Route: 042
     Dates: start: 20101111, end: 20110415
  5. AVASTIN [Suspect]
     Indication: BREAST CANCER METASTATIC
     Dosage: DOSE: 795, UNIT: NOT PROVIDED.
     Route: 042
     Dates: start: 20101111, end: 20111017

REACTIONS (1)
  - MYOCARDIAL INFARCTION [None]
